FAERS Safety Report 21137779 (Version 1)
Quarter: 2022Q3

REPORT INFORMATION
  Report Type: Spontaneous
  Country: US (occurrence: US)
  Receive Date: 20220727
  Receipt Date: 20220727
  Transmission Date: 20221027
  Serious: Yes (Other)
  Sender: FDA-Public Use
  Company Number: US-PFIZER INC-202201000724

PATIENT
  Age: 79 Year
  Sex: Female

DRUGS (1)
  1. PAXLOVID [Suspect]
     Active Substance: NIRMATRELVIR\RITONAVIR
     Indication: COVID-19 treatment
     Dosage: UNK

REACTIONS (7)
  - Hypertension [Unknown]
  - Heart rate decreased [Recovered/Resolved]
  - Oxygen saturation decreased [Unknown]
  - Rash [Unknown]
  - Swelling face [Unknown]
  - Dyspnoea [Unknown]
  - Feeling hot [Unknown]
